FAERS Safety Report 9272901 (Version 3)
Quarter: 2013Q2

REPORT INFORMATION
  Report Type: Spontaneous
  Country: GB (occurrence: GB)
  Receive Date: 20130506
  Receipt Date: 20130528
  Transmission Date: 20140414
  Serious: Yes (Other)
  Sender: FDA-Public Use
  Company Number: GB-JNJFOC-20090801611

PATIENT
  Age: 7 Year
  Sex: Female
  Weight: 20 kg

DRUGS (2)
  1. UNSPECIFIED IBUPROFEN 100 MG PRODUCT [Suspect]
     Indication: PYREXIA
     Dosage: STAT SINGLE
     Route: 048
  2. FLUCLOXACILLIN [Concomitant]
     Route: 065

REACTIONS (9)
  - Renal tubular necrosis [Recovered/Resolved]
  - Malaise [Unknown]
  - Vomiting [Recovered/Resolved]
  - Dehydration [Recovered/Resolved]
  - Anuria [Recovered/Resolved]
  - Azotaemia [Recovered/Resolved]
  - Haemodialysis [None]
  - Renal ischaemia [None]
  - Renal failure chronic [None]
